FAERS Safety Report 6351992-5 (Version None)
Quarter: 2009Q3

REPORT INFORMATION
  Report Type: 
  Country: None (occurrence: None)
  Receive Date: 20090912
  Receipt Date: 20090622
  Transmission Date: 20100115
  Serious: No
  Sender: FDA-Public Use
  Company Number: US-ABBOTT-07P-163-0426746-00

PATIENT
  Sex: Female
  Weight: 55.388 kg

DRUGS (3)
  1. HUMIRA [Suspect]
     Indication: CROHN'S DISEASE
     Route: 058
     Dates: start: 20071126
  2. MESALAZINE [Concomitant]
     Indication: CROHN'S DISEASE
  3. RIZATRIPTAN BENZOATE [Concomitant]
     Indication: MIGRAINE

REACTIONS (7)
  - ABDOMINAL PAIN UPPER [None]
  - INCORRECT DOSE ADMINISTERED [None]
  - INJECTION SITE ERYTHEMA [None]
  - INJECTION SITE HAEMATOMA [None]
  - INJECTION SITE PAIN [None]
  - INJECTION SITE REACTION [None]
  - WRONG TECHNIQUE IN DRUG USAGE PROCESS [None]
